FAERS Safety Report 13891798 (Version 2)
Quarter: 2017Q3

REPORT INFORMATION
  Report Type: Spontaneous
  Country: US (occurrence: US)
  Receive Date: 20170822
  Receipt Date: 20170926
  Transmission Date: 20171127
  Serious: Yes (Other)
  Sender: FDA-Public Use
  Company Number: US-TEVA-798974USA

PATIENT
  Sex: Female

DRUGS (1)
  1. AMPHETAMINE W/DEXTROAMPHETAMINE [Suspect]
     Active Substance: AMPHETAMINE SULFATE\DEXTROAMPHETAMINE
     Indication: ATTENTION DEFICIT/HYPERACTIVITY DISORDER
     Dates: start: 201707

REACTIONS (8)
  - Haematochezia [Recovered/Resolved]
  - Feeling abnormal [Unknown]
  - Migraine [Unknown]
  - Inflammation [Unknown]
  - Bowel movement irregularity [Unknown]
  - Fatigue [Unknown]
  - Dyspepsia [Unknown]
  - Abdominal discomfort [Unknown]
